FAERS Safety Report 15832611 (Version 1)
Quarter: 2018Q4

REPORT INFORMATION
  Report Type: Spontaneous
  Country: US (occurrence: US)
  Receive Date: 20181220
  Receipt Date: 20181220
  Transmission Date: 20190205
  Serious: Yes (Other)
  Sender: FDA-Public Use
  Company Number: None

PATIENT
  Age: 67 Year
  Sex: Male

DRUGS (2)
  1. ABRAXANE [Concomitant]
     Active Substance: PACLITAXEL
  2. CISPLATIN INJ 50MG/50ML BEDFORD LABS INC [Suspect]
     Active Substance: CISPLATIN
     Indication: OROPHARYNGEAL CANCER
     Dosage: OTHER?INTRAVENOUS (NOT OTHERWISE SPECIFIED)
     Route: 042
     Dates: start: 201812

REACTIONS (1)
  - Off label use [None]

NARRATIVE: CASE EVENT DATE: 20181219
